FAERS Safety Report 6863540-1 (Version None)
Quarter: 2010Q3

REPORT INFORMATION
  Report Type: 
  Country: None (occurrence: None)
  Receive Date: 20100721
  Receipt Date: 20080528
  Transmission Date: 20110219
  Serious: Yes (Other)
  Sender: FDA-Public Use
  Company Number: US-PFIZER INC-2008021339

PATIENT
  Age: 35 Year
  Sex: Male
  Weight: 90.7 kg

DRUGS (3)
  1. CHANTIX [Suspect]
     Indication: EX-TOBACCO USER
  2. ALCOHOL [Concomitant]
  3. AMBIEN [Concomitant]

REACTIONS (1)
  - MENTAL DISORDER [None]
